FAERS Safety Report 9961111 (Version 1)
Quarter: 2014Q1

REPORT INFORMATION
  Report Type: Report from Study
  Country: US (occurrence: US)
  Receive Date: 20140305
  Receipt Date: 20140305
  Transmission Date: 20141002
  Serious: No
  Sender: FDA-Public Use
  Company Number: US-ABBVIE-13P-163-1108914-00

PATIENT
  Age: 64 Year
  Sex: Female

DRUGS (8)
  1. HUMIRA [Suspect]
     Indication: CROHN^S DISEASE
     Dates: start: 201111
  2. PEPCID [Concomitant]
     Indication: GASTROOESOPHAGEAL REFLUX DISEASE
  3. FLEXERIL [Concomitant]
     Indication: BACK PAIN
     Dosage: AT BEDTIME
  4. MULTIVITAMIN [Concomitant]
     Indication: VITAMIN SUPPLEMENTATION
     Dosage: DAILY
  5. SUPER B COMPLEX [Concomitant]
     Indication: VITAMIN SUPPLEMENTATION
  6. CALCIUM [Concomitant]
     Indication: MINERAL SUPPLEMENTATION
  7. MAGNESIUM [Concomitant]
     Indication: MINERAL SUPPLEMENTATION
  8. ZINC [Concomitant]
     Indication: VITAMIN SUPPLEMENTATION

REACTIONS (1)
  - Abnormal faeces [Not Recovered/Not Resolved]
